FAERS Safety Report 25852357 (Version 2)
Quarter: 2025Q4

REPORT INFORMATION
  Report Type: Spontaneous
  Country: US (occurrence: US)
  Receive Date: 20250926
  Receipt Date: 20251013
  Transmission Date: 20260118
  Serious: No
  Sender: PFIZER
  Company Number: US-PFIZER INC-202500189770

PATIENT
  Age: 60 Year
  Sex: Female

DRUGS (2)
  1. IBRANCE [Suspect]
     Active Substance: PALBOCICLIB
     Indication: Breast cancer female
     Dosage: 100 MG, CYCLIC
  2. IBRANCE [Suspect]
     Active Substance: PALBOCICLIB
     Dosage: 75 MG, CYCLIC (TAKE 1 TABLET DAILY FOR DAYS 1 THROUGH 21 OF 28 DAY CYCLE)
     Route: 048
     Dates: start: 20250826

REACTIONS (3)
  - Fatigue [Recovering/Resolving]
  - Red blood cell count decreased [Recovering/Resolving]
  - Oropharyngeal pain [Unknown]
